FAERS Safety Report 4420887-6 (Version None)
Quarter: 2004Q3

REPORT INFORMATION
  Report Type: 
  Country: None (occurrence: None)
  Receive Date: 20040809
  Receipt Date: 20040628
  Transmission Date: 20050211
  Serious: Yes (Life-Threatening)
  Sender: FDA-Public Use
  Company Number: JP-ROCHE-372390

PATIENT
  Age: 10 Year
  Sex: Male
  Weight: 39 kg

DRUGS (4)
  1. TAMIFLU [Suspect]
     Route: 048
     Dates: start: 20040202, end: 20040202
  2. CALONAL [Concomitant]
     Dosage: DOSAGE REGIMEN: 300 MG IF NEEDED. GENERIC: ACETAMINOPHEN
     Route: 048
     Dates: start: 20040202, end: 20040202
  3. DIPROPHYLLINE [Concomitant]
     Indication: COUGH
     Route: 048
     Dates: start: 20040202, end: 20040202
  4. MUCODYNE [Concomitant]
     Route: 048
     Dates: start: 20040202

REACTIONS (6)
  - DEPRESSED LEVEL OF CONSCIOUSNESS [None]
  - FALL [None]
  - ILIUM FRACTURE [None]
  - PNEUMOTHORAX [None]
  - SPLENIC INJURY [None]
  - WRIST FRACTURE [None]
